FAERS Safety Report 14426531 (Version 1)
Quarter: 2018Q1

REPORT INFORMATION
  Report Type: Report from Study
  Country: FR (occurrence: FR)
  Receive Date: 20180123
  Receipt Date: 20180123
  Transmission Date: 20180509
  Serious: Yes (Death, Hospitalization, Other)
  Sender: FDA-Public Use
  Company Number: FR-TEVA-2018-FR-848269

PATIENT
  Age: 25 Year
  Sex: Male

DRUGS (4)
  1. SOLIRIS [Suspect]
     Active Substance: ECULIZUMAB
     Dosage: 600 MG, QW
     Route: 042
     Dates: start: 20140214, end: 20140512
  2. SOLIRIS [Suspect]
     Active Substance: ECULIZUMAB
     Indication: HAEMOLYTIC URAEMIC SYNDROME
     Dosage: 900 MG, QW
     Route: 042
  3. OFLOXACINE [Suspect]
     Active Substance: OFLOXACIN
     Indication: MULTIPLE ORGAN DYSFUNCTION SYNDROME
     Dosage: 125 MG, FOR 2 DAYS
     Route: 042
     Dates: start: 20140507
  4. OFLOXACINE [Suspect]
     Active Substance: OFLOXACIN
     Indication: INFECTION

REACTIONS (4)
  - Serratia test positive [Fatal]
  - Haemolytic uraemic syndrome [Fatal]
  - Septic shock [Fatal]
  - Condition aggravated [Fatal]

NARRATIVE: CASE EVENT DATE: 201405
